FAERS Safety Report 24153406 (Version 1)
Quarter: 2024Q3

REPORT INFORMATION
  Report Type: Spontaneous
  Country: US (occurrence: None)
  Receive Date: 20240730
  Receipt Date: 20240730
  Transmission Date: 20241017
  Serious: Yes (Life-Threatening, Hospitalization)
  Sender: Public
  Company Number: None

PATIENT
  Age: 67 Year
  Sex: Female
  Weight: 61.65 kg

DRUGS (1)
  1. LEQEMBI [Suspect]
     Active Substance: LECANEMAB-IRMB
     Indication: Dementia Alzheimer^s type
     Dosage: OTHER FREQUENCY : EVERY 2 WEEKS;?
     Route: 041
     Dates: start: 20240617, end: 20240715

REACTIONS (2)
  - Malaise [None]
  - Amyloid related imaging abnormality-oedema/effusion [None]

NARRATIVE: CASE EVENT DATE: 20240726
